FAERS Safety Report 19389617 (Version 1)
Quarter: 2021Q2

REPORT INFORMATION
  Report Type: Spontaneous
  Country: JP (occurrence: JP)
  Receive Date: 20210608
  Receipt Date: 20210608
  Transmission Date: 20210717
  Serious: Yes (Other)
  Sender: FDA-Public Use
  Company Number: JP-UNITED THERAPEUTICS-UNT-2018-008432

PATIENT
  Age: 30 Year
  Sex: Female
  Weight: 34 kg

DRUGS (13)
  1. WARFARIN [Concomitant]
     Active Substance: WARFARIN
     Indication: PRODUCT USED FOR UNKNOWN INDICATION
     Dosage: UNK
     Route: 048
  2. ASPARA K [Concomitant]
     Active Substance: POTASSIUM ASPARTATE
     Indication: PROPHYLAXIS
     Dosage: UNK
     Route: 048
     Dates: start: 20180523, end: 20180626
  3. FUROSEMIDE. [Concomitant]
     Active Substance: FUROSEMIDE
     Indication: PULMONARY ARTERIAL HYPERTENSION
     Dosage: UNK
     Route: 048
     Dates: start: 20180620, end: 20180626
  4. REMODULIN [Suspect]
     Active Substance: TREPROSTINIL
     Dosage: 0.0072 ?G/KG, CONTINUING
     Route: 058
     Dates: start: 2018, end: 201805
  5. SPIRONOLACTONE. [Concomitant]
     Active Substance: SPIRONOLACTONE
     Indication: PULMONARY ARTERIAL HYPERTENSION
     Dosage: UNK
     Route: 048
  6. REMODULIN [Suspect]
     Active Substance: TREPROSTINIL
     Dosage: 0.0086 ?G/KG, CONTINUING
     Route: 058
     Dates: start: 201805, end: 20180620
  7. AZOSEMIDE [Concomitant]
     Active Substance: AZOSEMIDE
     Indication: PULMONARY ARTERIAL HYPERTENSION
     Dosage: UNK
     Route: 048
     Dates: start: 20180510
  8. ADEMPAS [Concomitant]
     Active Substance: RIOCIGUAT
     Indication: PRODUCT USED FOR UNKNOWN INDICATION
     Dosage: UNK
     Route: 048
     Dates: start: 20180514
  9. AMBRISENTAN [Concomitant]
     Active Substance: AMBRISENTAN
     Indication: PULMONARY ARTERIAL HYPERTENSION
     Dosage: UNK
     Route: 048
     Dates: start: 201604
  10. TADALAFIL. [Concomitant]
     Active Substance: TADALAFIL
     Indication: PULMONARY ARTERIAL HYPERTENSION
     Dosage: UNK
     Route: 048
     Dates: start: 201604, end: 20180513
  11. REMODULIN [Suspect]
     Active Substance: TREPROSTINIL
     Indication: PULMONARY ARTERIAL HYPERTENSION
     Dosage: UNK UNK, CONTINUING
     Route: 058
     Dates: start: 20180426
  12. FERROUS CITRATE NA [Concomitant]
     Active Substance: SODIUM FERROUS CITRATE
     Indication: PROPHYLAXIS
     Dosage: UNK
     Route: 048
  13. DOBUPUM [Concomitant]
     Active Substance: DOBUTAMINE HYDROCHLORIDE
     Indication: PROPHYLAXIS
     Dosage: UNK
     Route: 065
     Dates: start: 20180514

REACTIONS (4)
  - Pain in extremity [Recovered/Resolved]
  - Injection site erythema [Recovering/Resolving]
  - Hypoxia [Recovering/Resolving]
  - Injection site pain [Recovered/Resolved]

NARRATIVE: CASE EVENT DATE: 20180506
